FAERS Safety Report 8996587 (Version 1)
Quarter: 2013Q1

REPORT INFORMATION
  Report Type: Spontaneous
  Country: US (occurrence: US)
  Receive Date: 20130104
  Receipt Date: 20130104
  Transmission Date: 20140127
  Serious: Yes (Other)
  Sender: FDA-Public Use
  Company Number: US-SHIRE-ALL1-2012-06609

PATIENT
  Sex: Male
  Weight: 66.21 kg

DRUGS (3)
  1. VYVANSE [Suspect]
     Indication: PRODUCT USED FOR UNKNOWN INDICATION
     Dosage: 50 MG, 2X/DAY:BID
     Route: 048
  2. VYVANSE [Suspect]
     Dosage: 50 MG, 3X/DAY:TID
     Route: 048
  3. VYVANSE [Suspect]
     Dosage: 60 MG, 1X/DAY:QD

REACTIONS (5)
  - Depression [Unknown]
  - Malaise [Unknown]
  - Drug prescribing error [Recovered/Resolved]
  - Drug effect decreased [Unknown]
  - Prescribed overdose [Recovered/Resolved]
